FAERS Safety Report 24755407 (Version 1)
Quarter: 2024Q4

REPORT INFORMATION
  Report Type: Report from Study
  Country: CN (occurrence: CN)
  Receive Date: 20241219
  Receipt Date: 20241219
  Transmission Date: 20250115
  Serious: Yes (Other)
  Sender: PFIZER
  Company Number: CN-TAKEDA-2024TUS016421

PATIENT
  Age: 20 Year
  Sex: Male
  Weight: 99 kg

DRUGS (4)
  1. BRENTUXIMAB VEDOTIN [Suspect]
     Active Substance: BRENTUXIMAB VEDOTIN
     Indication: Hodgkin^s disease refractory
     Dosage: 150 MILLIGRAM, Q3WEEKS
     Route: 041
     Dates: start: 20230916
  2. BRENTUXIMAB VEDOTIN [Suspect]
     Active Substance: BRENTUXIMAB VEDOTIN
     Dosage: 200 MILLIGRAM, Q3WEEKS
     Route: 041
     Dates: start: 20231008
  3. SINTILIMAB [Suspect]
     Active Substance: SINTILIMAB
     Indication: Hodgkin^s disease refractory
     Dosage: 200 MILLIGRAM, QD
     Route: 041
     Dates: start: 20230916, end: 20240125
  4. PHOSPHOLIPID [Suspect]
     Active Substance: PHOSPHOLIPID
     Dosage: UNK
     Route: 065

REACTIONS (2)
  - Hepatic failure [Not Recovered/Not Resolved]
  - Hyperuricaemia [Recovering/Resolving]

NARRATIVE: CASE EVENT DATE: 20231008
